FAERS Safety Report 7286501-X (Version None)
Quarter: 2011Q1

REPORT INFORMATION
  Report Type: 
  Country: None (occurrence: None)
  Receive Date: 20110210
  Receipt Date: 20110131
  Transmission Date: 20110831
  Serious: Yes (Other)
  Sender: FDA-Public Use
  Company Number: US-ROCHE-756316

PATIENT

DRUGS (3)
  1. CAPECITABINE [Suspect]
     Dosage: MODIFIED DOSE
     Route: 065
  2. CAPECITABINE [Suspect]
     Indication: RECTAL CANCER
     Dosage: ORIGINAL DOSE: 825 MG/M2 M-F WKS 1-5
     Route: 065
  3. OXALIPLATIN [Suspect]
     Indication: RECTAL CANCER
     Dosage: ON DAYS 1, 8, 22 AND 29 (ORIGINAL DOSE)
     Route: 065

REACTIONS (5)
  - SKIN DISORDER [None]
  - BLOOD DISORDER [None]
  - GASTROINTESTINAL DISORDER [None]
  - PAIN [None]
  - METABOLIC DISORDER [None]
